FAERS Safety Report 9630651 (Version 1)
Quarter: 2013Q4

REPORT INFORMATION
  Report Type: Spontaneous
  Country: US (occurrence: None)
  Receive Date: 20131016
  Receipt Date: 20131016
  Transmission Date: 20140711
  Serious: No
  Sender: FDA-Public Use
  Company Number: None

PATIENT
  Sex: Male
  Weight: 81.1 kg

DRUGS (2)
  1. AMPHETAMINE/DEXTROAMPHETAMINE [Suspect]
     Indication: ATTENTION DEFICIT/HYPERACTIVITY DISORDER
     Dosage: BY MOUTH
  2. DEXTROAMPHETAMINE-AMPHETAMINE XR [Suspect]
     Indication: ATTENTION DEFICIT/HYPERACTIVITY DISORDER
     Dosage: BY MOUTH
     Dates: start: 201310, end: 201309

REACTIONS (3)
  - Drug ineffective [None]
  - Therapeutic response unexpected with drug substitution [None]
  - Product substitution issue [None]
